FAERS Safety Report 17555931 (Version 5)
Quarter: 2020Q2

REPORT INFORMATION
  Report Type: Spontaneous
  Country: IT (occurrence: IT)
  Receive Date: 20200318
  Receipt Date: 20200513
  Transmission Date: 20200713
  Serious: Yes (Death, Hospitalization)
  Sender: FDA-Public Use
  Company Number: IT-PFIZER INC-2020114054

PATIENT
  Age: 81 Year
  Sex: Male
  Weight: 65 kg

DRUGS (12)
  1. SOLDESAM [Concomitant]
     Active Substance: DEXAMETHASONE
     Dosage: 8 MG, UNK
  2. LASIX [Concomitant]
     Active Substance: FUROSEMIDE
     Dosage: UNK
  3. ETOPOSIDE SANDOZ [Concomitant]
     Active Substance: ETOPOSIDE
     Dosage: 130 MG, UNK
     Dates: start: 20200123, end: 20200125
  4. ALTIAZEM [Concomitant]
     Active Substance: DILTIAZEM HYDROCHLORIDE
     Dosage: UNK
  5. ONDANSETRONE ACCORD HEALTHCARE [Concomitant]
     Active Substance: ONDANSETRON HYDROCHLORIDE
     Dosage: 8 MG, UNK
  6. NIVESTIM [Suspect]
     Active Substance: FILGRASTIM
     Indication: CHEMOTHERAPY
     Dosage: 30 MILLION IU, CYCLIC
     Route: 058
     Dates: start: 20200127, end: 20200201
  7. INHIXA [Concomitant]
     Active Substance: ENOXAPARIN SODIUM
     Dosage: UNK
  8. LANSOPRAZOLE. [Concomitant]
     Active Substance: LANSOPRAZOLE
     Dosage: UNK
  9. MINIAS [Concomitant]
     Active Substance: LORMETAZEPAM
     Dosage: UNK
  10. PANTORC [Concomitant]
     Active Substance: PANTOPRAZOLE SODIUM
     Dosage: 40 MG, UNK
  11. DELTACORTENE [Concomitant]
     Active Substance: PREDNISONE
     Dosage: UNK
  12. ALLOPURINOL. [Concomitant]
     Active Substance: ALLOPURINOL
     Dosage: UNK

REACTIONS (2)
  - Drug ineffective [Fatal]
  - Febrile neutropenia [Fatal]

NARRATIVE: CASE EVENT DATE: 20200201
